FAERS Safety Report 10145309 (Version 1)
Quarter: 2014Q2

REPORT INFORMATION
  Report Type: Spontaneous
  Country: US (occurrence: US)
  Receive Date: 20140501
  Receipt Date: 20140501
  Transmission Date: 20141212
  Serious: No
  Sender: FDA-Public Use
  Company Number: US-BIOGENIDEC-2014BI037615

PATIENT
  Age: 21 Year
  Sex: Female
  Weight: 107 kg

DRUGS (2)
  1. TECFIDERA [Suspect]
     Indication: MULTIPLE SCLEROSIS
     Route: 048
     Dates: start: 20140326
  2. TECFIDERA [Suspect]
     Indication: MULTIPLE SCLEROSIS
     Dates: start: 20140412, end: 20140414

REACTIONS (4)
  - Muscle twitching [Unknown]
  - Head titubation [Unknown]
  - Mobility decreased [Unknown]
  - Prescribed underdose [Recovered/Resolved]
